FAERS Safety Report 10416777 (Version 2)
Quarter: 2014Q3

REPORT INFORMATION
  Report Type: Spontaneous
  Country: US (occurrence: None)
  Receive Date: 20140826
  Receipt Date: 20140923
  Transmission Date: 20150326
  Serious: Yes (Other)
  Sender: FDA-Public Use
  Company Number: US-H14001-14-00418

PATIENT
  Age: 59 Year
  Sex: Female

DRUGS (4)
  1. HYDROMORPHONE (HYDROMORPHONE) (HYDRIMORPHONE) [Concomitant]
  2. BUPIVACAINE (BUPIVACAINE) (UNKOWN) (BUPIVACAINE) [Concomitant]
  3. FENTANYL (FENTANYL) (UNKNOWN) (FENTANYL)) [Concomitant]
  4. CLONIDINE. [Suspect]
     Active Substance: CLONIDINE
     Indication: BACK PAIN
     Dosage: UNKNOWN
     Route: 037
     Dates: start: 2001

REACTIONS (10)
  - Chest pain [None]
  - Withdrawal syndrome [None]
  - Off label use [None]
  - Dyspnoea [None]
  - Stress cardiomyopathy [None]
  - Back pain [None]
  - Blood pressure increased [None]
  - Electrocardiogram ST segment depression [None]
  - Electrocardiogram T wave inversion [None]
  - Troponin I increased [None]
